FAERS Safety Report 7786658-8 (Version None)
Quarter: 2011Q3

REPORT INFORMATION
  Report Type: 
  Country: None (occurrence: None)
  Receive Date: 20110929
  Receipt Date: 20110926
  Transmission Date: 20111222
  Serious: No
  Sender: FDA-Public Use
  Company Number: US-PFIZER INC-2011229211

PATIENT
  Sex: Female
  Weight: 81.633 kg

DRUGS (1)
  1. ADVIL CONGESTION RELIEF [Suspect]
     Indication: RESPIRATORY TRACT CONGESTION
     Dosage: 200/10 MG, 1X/DAY
     Route: 048
     Dates: start: 20110925, end: 20110926

REACTIONS (2)
  - RESPIRATORY TRACT CONGESTION [None]
  - DYSPNOEA [None]
